FAERS Safety Report 6220984-9 (Version None)
Quarter: 2009Q2

REPORT INFORMATION
  Report Type: 
  Country: None (occurrence: None)
  Receive Date: 20090605
  Receipt Date: 20090601
  Transmission Date: 20091009
  Serious: Yes (Other)
  Sender: FDA-Public Use
  Company Number: DE-WYE-H09546209

PATIENT

DRUGS (3)
  1. RAPAMUNE [Suspect]
     Indication: PROPHYLAXIS AGAINST TRANSPLANT REJECTION
     Dosage: 2 MG 2X PER 1 DAY ORAL
     Route: 048
  2. MYCOPHENOLATE MOFETIL [Suspect]
     Indication: PROPHYLAXIS AGAINST TRANSPLANT REJECTION
     Dosage: SEE IMAGE
     Route: 042
  3. MYCOPHENOLATE MOFETIL [Suspect]
     Dosage: DOSE AND FREQUENCY NOT SPECIFIED ORAL
     Route: 048

REACTIONS (3)
  - GASTRITIS EROSIVE [None]
  - GASTRITIS HERPES [None]
  - HUMAN HERPESVIRUS 6 INFECTION [None]
